FAERS Safety Report 6755743-1 (Version None)
Quarter: 2010Q2

REPORT INFORMATION
  Report Type: 
  Country: None (occurrence: None)
  Receive Date: 20100604
  Receipt Date: 20100524
  Transmission Date: 20101027
  Serious: Yes (Death, Other)
  Sender: FDA-Public Use
  Company Number: GB-PFIZER INC-2010064523

PATIENT

DRUGS (2)
  1. MISOPROSTOL [Suspect]
     Indication: ABORTION INDUCED
     Route: 064
  2. MIFEGYNE [Suspect]
     Indication: ABORTION INDUCED
     Dosage: 200 MG, UNK
     Route: 064

REACTIONS (3)
  - DEATH NEONATAL [None]
  - DRUG EXPOSURE DURING PREGNANCY [None]
  - DRUG INEFFECTIVE FOR UNAPPROVED INDICATION [None]
